FAERS Safety Report 16657875 (Version 1)
Quarter: 2019Q3

REPORT INFORMATION
  Report Type: Spontaneous
  Country: US (occurrence: US)
  Receive Date: 20190801
  Receipt Date: 20190801
  Transmission Date: 20191004
  Serious: No
  Sender: FDA-Public Use
  Company Number: US-009507513-1907USA014027

PATIENT
  Age: 56 Year
  Sex: Female

DRUGS (7)
  1. NOREPINEPHRINE. [Concomitant]
     Active Substance: NOREPINEPHRINE
     Indication: MULTIPLE ORGAN DYSFUNCTION SYNDROME
  2. FLUCONAZOLE. [Concomitant]
     Active Substance: FLUCONAZOLE
     Indication: INFECTION PROPHYLAXIS
  3. EPINEPHRINE. [Concomitant]
     Active Substance: EPINEPHRINE
     Indication: MULTIPLE ORGAN DYSFUNCTION SYNDROME
  4. VASOPRESSIN. [Concomitant]
     Active Substance: VASOPRESSIN
     Indication: MULTIPLE ORGAN DYSFUNCTION SYNDROME
  5. PHENYLEPHRINE [Concomitant]
     Active Substance: PHENYLEPHRINE HYDROCHLORIDE
     Indication: MULTIPLE ORGAN DYSFUNCTION SYNDROME
  6. VANCOMYCIN [Concomitant]
     Active Substance: VANCOMYCIN
     Indication: INFECTION PROPHYLAXIS
  7. PRIMAXIN IV [Suspect]
     Active Substance: CILASTATIN SODIUM\IMIPENEM
     Indication: INFECTION PROPHYLAXIS

REACTIONS (1)
  - Product use in unapproved indication [Unknown]
